FAERS Safety Report 6731417-8 (Version None)
Quarter: 2010Q2

REPORT INFORMATION
  Report Type: 
  Country: None (occurrence: None)
  Receive Date: 20100518
  Receipt Date: 20100518
  Transmission Date: 20101027
  Serious: Yes (Hospitalization)
  Sender: FDA-Public Use
  Company Number: None

PATIENT
  Sex: Female
  Weight: 12.1 kg

DRUGS (5)
  1. DEXAMETHASONE [Suspect]
     Dosage: 43.75 MG
  2. CYTARABINE [Suspect]
     Dosage: 70 MG
  3. METHOTREXATE [Suspect]
     Dosage: 12 MG
  4. PEG-L-ASPARAGINASE (PEGASPARGASE, ONCOSPAR) [Suspect]
     Dosage: 1400 UNIT
  5. VINCRISTINE SULFATE [Suspect]
     Dosage: 1.7 MG

REACTIONS (29)
  - ABDOMINAL DISTENSION [None]
  - ABDOMINAL PAIN [None]
  - ACUTE RESPIRATORY DISTRESS SYNDROME [None]
  - ANAEMIA [None]
  - ANURIA [None]
  - ARTERIAL THROMBOSIS LIMB [None]
  - ASCITES [None]
  - BACTERIAL TEST POSITIVE [None]
  - BLOOD AMYLASE INCREASED [None]
  - BLOOD PRESSURE DECREASED [None]
  - BLOOD URINE PRESENT [None]
  - BRADYCARDIA [None]
  - CAECITIS [None]
  - CARDIAC ARREST [None]
  - DEEP VEIN THROMBOSIS [None]
  - DISSEMINATED INTRAVASCULAR COAGULATION [None]
  - GASTROINTESTINAL DISORDER [None]
  - HAEMOLYSIS [None]
  - HYPOXIA [None]
  - KLEBSIELLA TEST POSITIVE [None]
  - LIPASE INCREASED [None]
  - NAUSEA [None]
  - PANCREATITIS ACUTE [None]
  - PLEURAL EFFUSION [None]
  - PYREXIA [None]
  - SEPTIC SHOCK [None]
  - SHOCK [None]
  - THROMBOPHLEBITIS SUPERFICIAL [None]
  - VOMITING [None]
